FAERS Safety Report 10930474 (Version 1)
Quarter: 2015Q1

REPORT INFORMATION
  Report Type: Spontaneous
  Country: US (occurrence: None)
  Receive Date: 20150211
  Receipt Date: 20150211
  Transmission Date: 20150721
  Serious: Yes (Other)
  Sender: FDA-Public Use
  Company Number: 2097169

PATIENT
  Age: 72 Year
  Sex: Male
  Weight: 149 kg

DRUGS (2)
  1. BUPIVACAINE HCL 0.75% IN DEX 8.25% INJ, USP  (BUPIV. SPINAL) (BUPIVACAINE HYDROCHLORIDE) [Suspect]
     Active Substance: BUPIVACAINE HYDROCHLORIDE\DEXTROSE
     Indication: ANAESTHESIA
     Dosage: 1.8 ML MILLILITRE(S), OTHER
     Dates: start: 20131119, end: 20131119
  2. VERSED [Concomitant]
     Active Substance: MIDAZOLAM HYDROCHLORIDE

REACTIONS (1)
  - Drug ineffective [None]

NARRATIVE: CASE EVENT DATE: 20131119
